FAERS Safety Report 25561018 (Version 1)
Quarter: 2025Q3

REPORT INFORMATION
  Report Type: Spontaneous
  Country: EU (occurrence: EU)
  Receive Date: 20250715
  Receipt Date: 20250715
  Transmission Date: 20251020
  Serious: Yes (Other)
  Sender: BEIGENE
  Company Number: None

PATIENT
  Age: 87 Year
  Weight: 98 kg

DRUGS (28)
  1. BRUKINSA [Suspect]
     Active Substance: ZANUBRUTINIB
     Indication: Waldenstrom^s macroglobulinaemia
  2. BRUKINSA [Suspect]
     Active Substance: ZANUBRUTINIB
  3. BRUKINSA [Suspect]
     Active Substance: ZANUBRUTINIB
     Route: 048
  4. BRUKINSA [Suspect]
     Active Substance: ZANUBRUTINIB
     Route: 048
  5. BRUKINSA [Suspect]
     Active Substance: ZANUBRUTINIB
  6. BRUKINSA [Suspect]
     Active Substance: ZANUBRUTINIB
  7. BRUKINSA [Suspect]
     Active Substance: ZANUBRUTINIB
     Route: 048
  8. BRUKINSA [Suspect]
     Active Substance: ZANUBRUTINIB
     Route: 048
  9. LEVOTHYROXINE SODIUM [Concomitant]
     Active Substance: LEVOTHYROXINE SODIUM
     Indication: Autoimmune thyroiditis
     Dosage: 1 ? 7H
     Route: 048
  10. LEVOTHYROXINE SODIUM [Concomitant]
     Active Substance: LEVOTHYROXINE SODIUM
     Dosage: 1 ? 7H
  11. FOLIC ACID [Concomitant]
     Active Substance: FOLIC ACID
     Indication: Vitamin supplementation
     Route: 048
  12. FOLIC ACID [Concomitant]
     Active Substance: FOLIC ACID
  13. POTASSIUM CHLORIDE [Concomitant]
     Active Substance: POTASSIUM CHLORIDE
     Indication: Hypokalaemia
     Dosage: 1 ? 12H
     Route: 048
  14. POTASSIUM CHLORIDE [Concomitant]
     Active Substance: POTASSIUM CHLORIDE
     Dosage: 1 ? 12H
  15. AMITRIPTYLINE HYDROCHLORIDE [Concomitant]
     Active Substance: AMITRIPTYLINE HYDROCHLORIDE
     Indication: Sleep disorder
     Route: 048
  16. AMITRIPTYLINE HYDROCHLORIDE [Concomitant]
     Active Substance: AMITRIPTYLINE HYDROCHLORIDE
  17. ACETAMINOPHEN\CODEINE PHOSPHATE [Concomitant]
     Active Substance: ACETAMINOPHEN\CODEINE PHOSPHATE
     Indication: Pain
     Route: 048
  18. ACETAMINOPHEN\CODEINE PHOSPHATE [Concomitant]
     Active Substance: ACETAMINOPHEN\CODEINE PHOSPHATE
  19. DOLIPRANE [Concomitant]
     Active Substance: ACETAMINOPHEN
     Indication: Pain
     Route: 048
  20. DOLIPRANE [Concomitant]
     Active Substance: ACETAMINOPHEN
  21. RIVAROXABAN [Concomitant]
     Active Substance: RIVAROXABAN
     Indication: Atrial fibrillation
     Route: 048
  22. RIVAROXABAN [Concomitant]
     Active Substance: RIVAROXABAN
  23. PREGABALIN [Concomitant]
     Active Substance: PREGABALIN
     Indication: Product used for unknown indication
     Dosage: 100 MG, QD
     Route: 048
  24. PREGABALIN [Concomitant]
     Active Substance: PREGABALIN
     Dosage: 100 MG, QD
  25. BISOPROLOL [Concomitant]
     Active Substance: BISOPROLOL
     Indication: Hypertension
     Route: 048
  26. BISOPROLOL [Concomitant]
     Active Substance: BISOPROLOL
  27. FUROSEMIDE [Concomitant]
     Active Substance: FUROSEMIDE
     Indication: Hypertension
     Route: 048
  28. FUROSEMIDE [Concomitant]
     Active Substance: FUROSEMIDE

REACTIONS (3)
  - Agranulocytosis [Recovered/Resolved]
  - Dry skin [Not Recovered/Not Resolved]
  - Vision blurred [Not Recovered/Not Resolved]
